FAERS Safety Report 6523894-2 (Version None)
Quarter: 2009Q4

REPORT INFORMATION
  Report Type: 
  Country: None (occurrence: None)
  Receive Date: 20091230
  Receipt Date: 20091230
  Transmission Date: 20100525
  Serious: No
  Sender: FDA-Public Use
  Company Number: None

PATIENT
  Age: 54 Year
  Sex: Male
  Weight: 184 kg

DRUGS (13)
  1. HEPARIN [Suspect]
     Indication: PROPHYLAXIS
     Dosage: 5000 UNITS SQ Q8HOURS
     Route: 058
     Dates: start: 20090928, end: 20091002
  2. HEPARIN [Suspect]
     Indication: DEEP VEIN THROMBOSIS
     Dosage: VAR IV CI
     Route: 042
     Dates: start: 20091003, end: 20091011
  3. APAP TAB [Concomitant]
  4. PHENERGAN HCL [Concomitant]
  5. ATORVASTATIN CALCIUM [Concomitant]
  6. ASPIRIN [Concomitant]
  7. DILAUDID [Concomitant]
  8. DULCOLAX [Concomitant]
  9. METOPROLOL TARTRATE [Concomitant]
  10. ZANTAC [Concomitant]
  11. ZOSYN [Concomitant]
  12. INSULIN [Concomitant]
  13. LASIX [Concomitant]

REACTIONS (1)
  - HEPARIN-INDUCED THROMBOCYTOPENIA [None]
